APPROVED DRUG PRODUCT: CILOSTAZOL
Active Ingredient: CILOSTAZOL
Strength: 50MG
Dosage Form/Route: TABLET;ORAL
Application: A077208 | Product #002 | TE Code: AB
Applicant: SLATE RUN PHARMACEUTICALS LLC
Approved: Mar 29, 2006 | RLD: No | RS: No | Type: RX